FAERS Safety Report 9097590 (Version 1)
Quarter: 2013Q1

REPORT INFORMATION
  Report Type: Spontaneous
  Country: AU (occurrence: AU)
  Receive Date: 20130212
  Receipt Date: 20130212
  Transmission Date: 20140127
  Serious: Yes (Other)
  Sender: FDA-Public Use
  Company Number: AU-JNJFOC-20130201045

PATIENT
  Sex: Female

DRUGS (2)
  1. SPORANOX [Suspect]
     Indication: ASPERGILLUS INFECTION
     Route: 048
  2. VALIUM [Interacting]
     Indication: MUSCLE SPASMS
     Route: 065

REACTIONS (13)
  - Hallucination [Unknown]
  - Blood pressure increased [Unknown]
  - Vision blurred [Unknown]
  - Back pain [Unknown]
  - Hearing impaired [Unknown]
  - Muscular weakness [Unknown]
  - Fatigue [Unknown]
  - Headache [Unknown]
  - Dizziness [Unknown]
  - Constipation [Unknown]
  - Oesophageal pain [Unknown]
  - Muscle spasms [Unknown]
  - Drug interaction [Unknown]
